FAERS Safety Report 9123639 (Version 2)
Quarter: 2013Q1

REPORT INFORMATION
  Report Type: Spontaneous
  Country: US (occurrence: US)
  Receive Date: 20130114
  Receipt Date: 20130213
  Transmission Date: 20140127
  Serious: Yes (Life-Threatening, Other)
  Sender: FDA-Public Use
  Company Number: US-RB-048102-12

PATIENT
  Age: 0 None
  Sex: Female

DRUGS (5)
  1. GENERIC BUPRENORPHINE [Suspect]
     Route: 064
     Dates: start: 20121115, end: 2012
  2. GENERIC BUPRENORPHINE [Suspect]
     Indication: DRUG DEPENDENCE
     Route: 063
     Dates: start: 2012
  3. SUBOXONE FILM [Suspect]
     Indication: DRUG DEPENDENCE
     Dosage: SUBOXONE FILM
     Route: 064
     Dates: start: 2012, end: 2012
  4. SUBOXONE FILM [Suspect]
     Dosage: SUBOXONE FILM
     Route: 063
     Dates: start: 2012, end: 2012
  5. VARIOUS ILLICIT OPIOIDS [Suspect]
     Indication: SUBSTANCE ABUSE
     Dosage: UNKNOWN DOSING DETAILS
     Route: 064
     Dates: start: 201205, end: 2012

REACTIONS (4)
  - Foetal exposure during pregnancy [Recovered/Resolved]
  - Premature baby [Recovered/Resolved]
  - Drug withdrawal syndrome neonatal [Not Recovered/Not Resolved]
  - Exposure during breast feeding [Not Recovered/Not Resolved]
